FAERS Safety Report 9513852 (Version 1)
Quarter: 2013Q1

REPORT INFORMATION
  Report Type: Spontaneous
  Country: US (occurrence: None)
  Receive Date: 20130305
  Receipt Date: 20130305
  Transmission Date: 20140127
  Serious: Yes (Hospitalization)
  Sender: FDA-Public Use
  Company Number: 163-21880-12043098

PATIENT
  Age: 67 Year
  Sex: Female

DRUGS (1)
  1. REVLIMID [Suspect]
     Indication: PLASMA CELL MYELOMA
     Dosage: 1-21 OF 28 DAYS
     Route: 048
     Dates: start: 200908, end: 201206

REACTIONS (6)
  - Pneumonia [None]
  - Red blood cell count decreased [None]
  - Platelet count decreased [None]
  - Muscle spasms [None]
  - Neuropathy peripheral [None]
  - White blood cell count decreased [None]
